FAERS Safety Report 18538033 (Version 1)
Quarter: 2020Q4

REPORT INFORMATION
  Report Type: Other
  Country: US (occurrence: US)
  Receive Date: 20201123
  Receipt Date: 20201123
  Transmission Date: 20210114
  Serious: Yes (Hospitalization, Other)
  Sender: FDA-Public Use
  Company Number: US-INVATECH-000033

PATIENT
  Sex: Female

DRUGS (17)
  1. CALCIUM [Suspect]
     Active Substance: CALCIUM
     Indication: SEIZURE
     Route: 065
  2. CALCIUM [Suspect]
     Active Substance: CALCIUM
     Indication: PARAESTHESIA
     Dosage: SELF TREATED SYMPTOMS ACUTELY WITH EXTRA ORAL CALCIUM
     Route: 065
  3. CALCIUM [Suspect]
     Active Substance: CALCIUM
     Indication: HYPOCALCAEMIA
     Dosage: AT THE AGE OF 23 YEARS
     Route: 065
  4. CALCIUM [Suspect]
     Active Substance: CALCIUM
     Indication: HYPOCALCAEMIA
     Dosage: 1YEAR BEFORE PTH (1-84)
     Route: 065
  5. CALCITRIOL. [Suspect]
     Active Substance: CALCITRIOL
     Indication: HYPOPARATHYROIDISM
     Route: 065
  6. CALCIUM [Suspect]
     Active Substance: CALCIUM
     Indication: NEPHROCALCINOSIS
     Route: 065
  7. CALCITRIOL. [Suspect]
     Active Substance: CALCITRIOL
     Indication: HYPOCALCAEMIA
     Route: 065
  8. CALCITRIOL. [Suspect]
     Active Substance: CALCITRIOL
     Indication: NEPHROCALCINOSIS
     Route: 065
  9. CHOLECALCIFEROL [Suspect]
     Active Substance: CHOLECALCIFEROL
     Indication: HYPOCALCAEMIA
     Dosage: AT THE AGE OF 12 YEARS
  10. FORTEO [Concomitant]
     Active Substance: TERIPARATIDE
     Indication: HYPOCALCAEMIA
     Dosage: 17.5 MCG (AM), 15 MCG (PM) AT THE AGE OF 23 YEARS
     Route: 058
  11. CALCITRIOL. [Suspect]
     Active Substance: CALCITRIOL
     Indication: SEIZURE
     Route: 065
  12. CALCIUM [Suspect]
     Active Substance: CALCIUM
     Indication: NAUSEA
     Dosage: SELF-TREATED SYMPTOMS ACUTELY WITH EXTRA ORAL CALCIUM
     Route: 065
  13. MAGNESIUM [Concomitant]
     Active Substance: MAGNESIUM
     Indication: HYPOCALCAEMIA
     Dosage: AT THE AGE OF 12 YEARS
     Route: 065
  14. CALCIUM [Suspect]
     Active Substance: CALCIUM
     Indication: HYPOCALCAEMIA
     Route: 065
  15. FORTEO [Concomitant]
     Active Substance: TERIPARATIDE
     Indication: HYPOCALCAEMIA
     Route: 058
  16. FORTEO [Concomitant]
     Active Substance: TERIPARATIDE
     Indication: HYPOCALCAEMIA
     Dosage: 17.5 MCG (AM), 15 MCG (PM) 1-YEAR BEFORE PTH (1-84)
     Route: 058
  17. CALCIUM [Suspect]
     Active Substance: CALCIUM
     Indication: HYPOPARATHYROIDISM
     Route: 065

REACTIONS (2)
  - Tetany [Unknown]
  - Condition aggravated [Not Recovered/Not Resolved]
